FAERS Safety Report 9620831 (Version 1)
Quarter: 2013Q4

REPORT INFORMATION
  Report Type: Spontaneous
  Country: BR (occurrence: BR)
  Receive Date: 20131015
  Receipt Date: 20131015
  Transmission Date: 20140711
  Serious: Yes (Other)
  Sender: FDA-Public Use
  Company Number: BR-ACCORD-019898

PATIENT
  Age: 56 Year
  Sex: Male
  Weight: 42.6 kg

DRUGS (5)
  1. DIFENIDRIN [Concomitant]
     Route: 042
     Dates: start: 20130913, end: 20130913
  2. DEXAMETASON [Concomitant]
     Route: 042
     Dates: start: 20130913, end: 20130913
  3. RANITIDINE [Concomitant]
     Route: 042
     Dates: start: 20130913, end: 20130913
  4. NAUSETRON [Concomitant]
     Route: 042
     Dates: start: 20130913, end: 20130913
  5. PACLITAXEL [Suspect]
     Indication: METASTASES TO LUNG
     Route: 042
     Dates: start: 20130913, end: 20130913

REACTIONS (1)
  - Tremor [Recovered/Resolved]
